FAERS Safety Report 4417903-4 (Version None)
Quarter: 2004Q2

REPORT INFORMATION
  Report Type: 
  Country: None (occurrence: None)
  Receive Date: 20040618
  Receipt Date: 20040330
  Transmission Date: 20050107
  Serious: Yes (Other)
  Sender: FDA-Public Use
  Company Number: US-SHR-04-023326

PATIENT
  Age: 51 Year
  Sex: Male

DRUGS (6)
  1. FLUDARA [Suspect]
     Indication: LYMPHOMA
  2. CLOZAPINE [Suspect]
     Indication: PSYCHOTIC DISORDER
     Dosage: 250 MG, 2X/DAY, ORAL
     Route: 048
     Dates: start: 19990401, end: 20040219
  3. RITUXAN (RITUXAN) [Suspect]
     Indication: LYMPHOMA
  4. ZYPREXA [Concomitant]
  5. DIVALPROEX SODIUM [Concomitant]
  6. NEUPOGEN [Concomitant]

REACTIONS (1)
  - AGRANULOCYTOSIS [None]
